FAERS Safety Report 19210122 (Version 1)
Quarter: 2021Q2

REPORT INFORMATION
  Report Type: Spontaneous
  Country: US (occurrence: US)
  Receive Date: 20210504
  Receipt Date: 20210504
  Transmission Date: 20210717
  Serious: No
  Sender: FDA-Public Use
  Company Number: US-DRREDDYS-USA/USA/21/0134924

PATIENT
  Age: 31 Year
  Sex: Female

DRUGS (1)
  1. ZENATANE [Suspect]
     Active Substance: ISOTRETINOIN
     Indication: PRODUCT USED FOR UNKNOWN INDICATION
     Dosage: RMA ISSUE DATE: 6/NOV/2020 10:27:31 AM, 10/DEC/2020 10:20:53 AM, 13/JAN/2021 5:38:24 PM, 19/FEB/2021
     Route: 048

REACTIONS (1)
  - Product administration interrupted [Unknown]
